FAERS Safety Report 6754999-9 (Version None)
Quarter: 2010Q2

REPORT INFORMATION
  Report Type: 
  Country: None (occurrence: None)
  Receive Date: 20100602
  Receipt Date: 20100519
  Transmission Date: 20101027
  Serious: Yes (Other)
  Sender: FDA-Public Use
  Company Number: MC201000042

PATIENT
  Age: 88 Year
  Sex: Female

DRUGS (3)
  1. ANGIOMAX [Suspect]
     Indication: PERCUTANEOUS CORONARY INTERVENTION
     Dosage: 0.75 MG/KG, BOLUS, 1.75 MG/KG, HR, INTRAVENOUS
     Route: 042
     Dates: start: 20100127, end: 20100127
  2. ANGIOMAX [Suspect]
     Indication: PERCUTANEOUS CORONARY INTERVENTION
     Dosage: 0.75 MG/KG, BOLUS, 1.75 MG/KG, HR, INTRAVENOUS
     Route: 042
     Dates: start: 20100127
  3. UNFRACTIONATED HEPARIN (HEPARIN) [Concomitant]

REACTIONS (3)
  - INCORRECT ROUTE OF DRUG ADMINISTRATION [None]
  - INTRACARDIAC THROMBUS [None]
  - RETROPERITONEAL HAEMATOMA [None]
